FAERS Safety Report 24236366 (Version 1)
Quarter: 2024Q3

REPORT INFORMATION
  Report Type: Spontaneous
  Country: US (occurrence: US)
  Receive Date: 20240822
  Receipt Date: 20240822
  Transmission Date: 20241016
  Serious: No
  Sender: JOHNSON AND JOHNSON
  Company Number: US-JNJFOC-20240844866

PATIENT
  Sex: Female

DRUGS (6)
  1. SPRAVATO [Suspect]
     Active Substance: ESKETAMINE
     Indication: Depression
     Dosage: 26-JUL-2022,19-JUL-2022,12-JUL-2022,28-JUN-2022,14-JUN-2022,7-JUN-2022,31-MAY-2022,3-MAY-2022,29-APR
     Dates: start: 201911, end: 20220726
  2. KETAMINE [Concomitant]
     Active Substance: KETAMINE
     Indication: Product used for unknown indication
  3. MIRTAZAPINE [Concomitant]
     Active Substance: MIRTAZAPINE
  4. ALPRAZOLAM [Concomitant]
     Active Substance: ALPRAZOLAM
  5. GABAPENTIN [Concomitant]
     Active Substance: GABAPENTIN
  6. QUETIAPINE [Concomitant]
     Active Substance: QUETIAPINE

REACTIONS (2)
  - Disturbance in social behaviour [Unknown]
  - Compulsions [Not Recovered/Not Resolved]
